FAERS Safety Report 23075141 (Version 3)
Quarter: 2023Q4

REPORT INFORMATION
  Report Type: Spontaneous
  Country: BR (occurrence: BR)
  Receive Date: 20231017
  Receipt Date: 20231031
  Transmission Date: 20240110
  Serious: Yes (Other)
  Sender: FDA-Public Use
  Company Number: BR-002147023-NVSC2023BR221986

PATIENT
  Sex: Female
  Weight: 51 kg

DRUGS (10)
  1. KISQALI [Suspect]
     Active Substance: RIBOCICLIB
     Indication: Hepatic cancer
     Dosage: 3 DOSAGE FORM (21 DAYS WITH PAUSE OF 7 DAYS)
     Route: 048
     Dates: start: 2023
  2. KISQALI [Suspect]
     Active Substance: RIBOCICLIB
     Indication: Lung neoplasm malignant
  3. KISQALI [Suspect]
     Active Substance: RIBOCICLIB
     Indication: Bone cancer
  4. KISQALI [Suspect]
     Active Substance: RIBOCICLIB
     Indication: Breast cancer
  5. ZOMETA [Suspect]
     Active Substance: ZOLEDRONIC ACID
     Indication: Bone disorder
     Dosage: UNK, Q3MO
     Route: 042
     Dates: start: 2021
  6. FULVESTRANT [Suspect]
     Active Substance: FULVESTRANT
     Indication: Hepatic cancer
     Dosage: 2 DOSAGE FORM, QMO (2 INJECTIONS MONTHLY)
     Route: 030
     Dates: start: 2023
  7. FULVESTRANT [Suspect]
     Active Substance: FULVESTRANT
     Indication: Lung neoplasm malignant
  8. FULVESTRANT [Suspect]
     Active Substance: FULVESTRANT
     Indication: Bone cancer
  9. FULVESTRANT [Suspect]
     Active Substance: FULVESTRANT
     Indication: Breast cancer
  10. LOSARTAN [Concomitant]
     Active Substance: LOSARTAN
     Indication: Hypertension
     Dosage: 1 DOSAGE FORM (BY MORNING)
     Route: 048
     Dates: start: 2013

REACTIONS (12)
  - Hepatic cancer [Recovering/Resolving]
  - Lung neoplasm malignant [Recovering/Resolving]
  - Bone cancer [Recovering/Resolving]
  - Cataract [Unknown]
  - Lacrimation increased [Unknown]
  - Vision blurred [Not Recovered/Not Resolved]
  - Skin mass [Recovering/Resolving]
  - Pruritus [Recovering/Resolving]
  - Erythema [Recovering/Resolving]
  - Burning sensation [Recovering/Resolving]
  - Pain in extremity [Recovered/Resolved]
  - Product use in unapproved indication [Unknown]

NARRATIVE: CASE EVENT DATE: 20210101
